FAERS Safety Report 9225185 (Version 1)
Quarter: 2013Q2

REPORT INFORMATION
  Report Type: Spontaneous
  Country: JP (occurrence: None)
  Receive Date: 20130409
  Receipt Date: 20130409
  Transmission Date: 20140414
  Serious: Yes (Hospitalization, Other)
  Sender: FDA-Public Use
  Company Number: 2009JP001741

PATIENT
  Age: 33 Year
  Sex: Male
  Weight: 58.4 kg

DRUGS (13)
  1. PROGRAF (TACROLIMUS) CAPSULE [Suspect]
     Route: 048
     Dates: start: 20080605, end: 20081027
  2. PREDONINE [Concomitant]
  3. NEORAL (CICLOSPORIN) [Concomitant]
  4. ACTONEL (RISEDRONATE SODIUM) [Concomitant]
  5. ZANTAC (RANITIDINE HYDROCHLORIDE) [Concomitant]
  6. BAYASPIRIN (ACETYLSALICYLIC ACID) [Concomitant]
  7. WARFARIN (WARFARIN) [Concomitant]
  8. ONE ALPHA (ALFACALCIDOL) [Concomitant]
  9. MEVALOTIN (PRAVASTATIN SODIUM) [Concomitant]
  10. ACECOL (TEMOCAPRIL HYDROCHLORIDE) [Concomitant]
  11. AMLODIN (AMLODIPINE BESILATE) [Concomitant]
  12. FLUITRAN (TRICHLORMETHIAZIDE) [Concomitant]
  13. PERSANTIN-L (DIPYRIDAMOLE) [Concomitant]

REACTIONS (8)
  - Drug ineffective [None]
  - Lupus nephritis [None]
  - Condition aggravated [None]
  - Platelet count decreased [None]
  - Blood pressure increased [None]
  - Pancytopenia [None]
  - Proteinuria [None]
  - Hypocomplementaemia [None]
